FAERS Safety Report 24910898 (Version 1)
Quarter: 2025Q1

REPORT INFORMATION
  Report Type: Spontaneous
  Country: US (occurrence: US)
  Receive Date: 20250131
  Receipt Date: 20250131
  Transmission Date: 20250409
  Serious: No
  Sender: MERCK
  Company Number: US-009507513-2501USA008929

PATIENT
  Sex: Female
  Weight: 92.5 kg

DRUGS (28)
  1. WINREVAIR [Suspect]
     Active Substance: SOTATERCEPT-CSRK
  2. TYVASO [Suspect]
     Active Substance: TREPROSTINIL
     Indication: Pulmonary arterial hypertension
     Dosage: 72 MICROGRAM (12 BREATHS), QID
     Dates: start: 20140108
  3. FUROSEMIDE [Concomitant]
     Active Substance: FUROSEMIDE
  4. FAMOTIDINE [Concomitant]
     Active Substance: FAMOTIDINE
  5. VANCOMYCIN HYDROCHLORIDE [Concomitant]
     Active Substance: VANCOMYCIN HYDROCHLORIDE
  6. VITAMINS NOS [Concomitant]
     Active Substance: VITAMINS
     Route: 048
  7. TYLENOL [Concomitant]
     Active Substance: ACETAMINOPHEN
  8. EPINEPHRINE [Concomitant]
     Active Substance: EPINEPHRINE
  9. NORETHINDRONE ACETATE [Concomitant]
     Active Substance: NORETHINDRONE ACETATE
  10. OPSUMIT [Concomitant]
     Active Substance: MACITENTAN
  11. FLAXSEED [Concomitant]
     Active Substance: FLAX SEED
  12. VITAMIN D2 [Concomitant]
     Active Substance: ERGOCALCIFEROL
  13. REVATIO [Concomitant]
     Active Substance: SILDENAFIL CITRATE
  14. ETODOLAC [Concomitant]
     Active Substance: ETODOLAC
  15. CHLORHEXIDINE GLUCONATE [Concomitant]
     Active Substance: CHLORHEXIDINE GLUCONATE
  16. VITAMINS [Concomitant]
     Active Substance: VITAMINS
     Route: 048
  17. DOCONEXENT\ICOSAPENT [Concomitant]
     Active Substance: DOCONEXENT\ICOSAPENT
  18. FLORASTOR [SACCHAROMYCES BOULARDII] [Concomitant]
  19. MAGNESIUM CHLORIDE [Concomitant]
     Active Substance: MAGNESIUM CHLORIDE
  20. IRONUP [Concomitant]
  21. D 400 [Concomitant]
  22. TRANEXAMIC ACID [Concomitant]
     Active Substance: TRANEXAMIC ACID
  23. DEXAMETHASONE [Concomitant]
     Active Substance: DEXAMETHASONE
  24. OXYGEN [Concomitant]
     Active Substance: OXYGEN
  25. PAROXETINE HYDROCHLORIDE [Concomitant]
     Active Substance: PAROXETINE HYDROCHLORIDE
  26. DIGOXIN [Concomitant]
     Active Substance: DIGOXIN
  27. CYCLOBENZAPRINE HYDROCHLORIDE [Concomitant]
     Active Substance: CYCLOBENZAPRINE HYDROCHLORIDE
  28. TRIAMCINOLONE ACETONIDE [Concomitant]
     Active Substance: TRIAMCINOLONE ACETONIDE

REACTIONS (1)
  - Epistaxis [Recovered/Resolved]
